FAERS Safety Report 5063673-9 (Version None)
Quarter: 2006Q3

REPORT INFORMATION
  Report Type: 
  Country: None (occurrence: None)
  Receive Date: 20060727
  Receipt Date: 20060717
  Transmission Date: 20061208
  Serious: Yes (Hospitalization)
  Sender: FDA-Public Use
  Company Number: AU-GLAXOSMITHKLINE-B0431293A

PATIENT
  Age: 2 Year
  Sex: Female
  Weight: 14 kg

DRUGS (1)
  1. CHILDREN'S PANADOL COLOURFREE SUSPENSION 5-12 YEARS [Suspect]
     Dosage: 60ML PER DAY
     Route: 048

REACTIONS (1)
  - ACCIDENTAL OVERDOSE [None]
